FAERS Safety Report 7458964-8 (Version None)
Quarter: 2011Q2

REPORT INFORMATION
  Report Type: 
  Country: None (occurrence: None)
  Receive Date: 20110504
  Receipt Date: 20110429
  Transmission Date: 20111010
  Serious: Yes (Hospitalization, Other)
  Sender: FDA-Public Use
  Company Number: US-RB-022880-11

PATIENT
  Age: 53 Year
  Sex: Female

DRUGS (1)
  1. SUBOXONE [Suspect]
     Indication: DRUG DEPENDENCE
     Dosage: ^4-8 MG/DAY^
     Route: 060
     Dates: start: 20080101, end: 20110417

REACTIONS (4)
  - SPINAL COLUMN STENOSIS [None]
  - LARGE INTESTINE PERFORATION [None]
  - PAIN [None]
  - PERITONITIS [None]
